FAERS Safety Report 12113591 (Version 1)
Quarter: 2016Q1

REPORT INFORMATION
  Report Type: Report from Study
  Country: CA (occurrence: SA)
  Receive Date: 20160225
  Receipt Date: 20160225
  Transmission Date: 20160526
  Serious: Yes (Other)
  Sender: FDA-Public Use
  Company Number: CA-ROCHE-1716379

PATIENT
  Age: 5 Year
  Sex: Male

DRUGS (6)
  1. RITUXIMAB [Suspect]
     Active Substance: RITUXIMAB
     Indication: ACUTE LYMPHOCYTIC LEUKAEMIA
     Dosage: TOTAL DOSES 9
     Route: 050
  2. METHOTREXATE [Concomitant]
     Active Substance: METHOTREXATE
     Route: 039
  3. CYTARABINE. [Concomitant]
     Active Substance: CYTARABINE
     Route: 039
  4. ETOPOSIDE. [Concomitant]
     Active Substance: ETOPOSIDE
  5. IFOSFAMIDE. [Concomitant]
     Active Substance: IFOSFAMIDE
  6. CARBOPLATINE [Concomitant]
     Active Substance: CARBOPLATIN

REACTIONS (2)
  - Seizure [Unknown]
  - Product use issue [Unknown]
